FAERS Safety Report 8245395-6 (Version None)
Quarter: 2012Q1

REPORT INFORMATION
  Report Type: 
  Country: None (occurrence: None)
  Receive Date: 20120329
  Receipt Date: 20120322
  Transmission Date: 20120608
  Serious: Yes (Hospitalization)
  Sender: FDA-Public Use
  Company Number: US-ABBOTT-12P-163-0918167-00

PATIENT
  Sex: Male
  Weight: 70.37 kg

DRUGS (16)
  1. HYDROXYZINE PAMOATE [Concomitant]
     Indication: SLEEP DISORDER
  2. MECLIZINE [Concomitant]
     Indication: VERTIGO
  3. ENTOCORT EC [Suspect]
     Indication: CROHN'S DISEASE
     Dates: end: 20120318
  4. REMERON [Concomitant]
     Indication: SLEEP DISORDER
  5. ENTOCORT EC [Suspect]
     Dates: start: 20120319
  6. MORPHINE [Concomitant]
     Indication: ARTHRALGIA
  7. XANAX [Concomitant]
     Indication: PSYCHOTIC DISORDER
  8. HUMIRA [Suspect]
     Indication: CROHN'S DISEASE
     Dosage: 160 MG LOADING DOSE
     Dates: start: 20120312, end: 20120312
  9. SEROQUEL [Concomitant]
     Indication: SLEEP DISORDER
  10. DILAUDID [Concomitant]
     Indication: ARTHRALGIA
  11. HYTRIN [Concomitant]
     Indication: PRODUCT USED FOR UNKNOWN INDICATION
  12. SYNTHROID [Concomitant]
     Indication: HYPOTHYROIDISM
  13. PRISTIQ [Concomitant]
     Indication: DEPRESSION
  14. CELEBREX [Concomitant]
     Indication: ARTHRALGIA
  15. XANAX [Concomitant]
     Indication: ANXIETY
  16. PRILOSEC [Concomitant]
     Indication: GASTROOESOPHAGEAL REFLUX DISEASE

REACTIONS (8)
  - TREMOR [None]
  - SMALL INTESTINE ULCER [None]
  - GASTROINTESTINAL HAEMORRHAGE [None]
  - DYSSTASIA [None]
  - DIZZINESS [None]
  - HYPERTENSION [None]
  - CROHN'S DISEASE [None]
  - HAEMOGLOBIN DECREASED [None]
